FAERS Safety Report 9471445 (Version 2)
Quarter: 2013Q3

REPORT INFORMATION
  Report Type: Spontaneous
  Country: SZ (occurrence: CH)
  Receive Date: 20130822
  Receipt Date: 20130918
  Transmission Date: 20140515
  Serious: Yes (Other)
  Sender: FDA-Public Use
  Company Number: CH-TEVA-426848ISR

PATIENT
  Sex: Male

DRUGS (2)
  1. PAROXETIN-MEPHA [Suspect]
     Dosage: 20 MILLIGRAM DAILY; FROM AUG-2013, PATIENT TOOK PAROXETINE AGAIN ON HIS OWN ACCORD
     Route: 048
     Dates: start: 201308
  2. QUETIAPINE [Suspect]
     Dosage: AT IRREGULAR INTERVALS

REACTIONS (2)
  - Electrocardiogram QT prolonged [Recovered/Resolved]
  - Blood potassium increased [Unknown]
